FAERS Safety Report 4364094-4 (Version None)
Quarter: 2004Q2

REPORT INFORMATION
  Report Type: 
  Country: None (occurrence: None)
  Receive Date: 20040519
  Receipt Date: 20040510
  Transmission Date: 20050107
  Serious: Yes (Other)
  Sender: FDA-Public Use
  Company Number: 2004-05-0411

PATIENT
  Sex: Male

DRUGS (3)
  1. AERIUS (DESLORATADINE) [Suspect]
     Indication: RHINITIS ALLERGIC
     Dosage: 5MG ORAL
     Route: 048
     Dates: start: 20040315, end: 20040425
  2. BISOPROLOL [Concomitant]
  3. FLUDEX [Concomitant]

REACTIONS (1)
  - ASTHMA [None]
